FAERS Safety Report 9424195 (Version 1)
Quarter: 2013Q3

REPORT INFORMATION
  Report Type: Report from Study
  Country: US (occurrence: US)
  Receive Date: 20130729
  Receipt Date: 20130729
  Transmission Date: 20140515
  Serious: Yes (Hospitalization)
  Sender: FDA-Public Use
  Company Number: US-SHIRE-ALL1-2013-05006

PATIENT
  Age: 69 Year
  Sex: Male
  Weight: 79.5 kg

DRUGS (5)
  1. VELAGLUCERASE ALFA [Suspect]
     Indication: GAUCHER^S DISEASE
     Dosage: 30 IU/KG, 1X/2WKS
     Route: 041
     Dates: start: 20091021
  2. ZOFRAN                             /00955301/ [Concomitant]
     Indication: NAUSEA
     Dosage: 4 MG, AS REQ^D
     Route: 048
     Dates: start: 20121127
  3. ATENOLOL [Concomitant]
     Indication: HYPERTENSION
     Dosage: 100 MG, 1X/DAY:QD
     Route: 048
     Dates: start: 201111
  4. ASPIRIN [Concomitant]
     Indication: ROUTINE HEALTH MAINTENANCE
     Dosage: 81 MG, 1X/DAY:QD
     Route: 048
     Dates: start: 20100909
  5. LOSARTAN [Concomitant]
     Indication: HYPERTENSION
     Dosage: 25 MG, 1X/DAY:QD
     Route: 048
     Dates: start: 201003

REACTIONS (2)
  - Cerebral infarction [Recovered/Resolved]
  - Transient ischaemic attack [Recovered/Resolved with Sequelae]
